FAERS Safety Report 7111097-2 (Version None)
Quarter: 2010Q4

REPORT INFORMATION
  Report Type: 
  Country: None (occurrence: None)
  Receive Date: 20101118
  Receipt Date: 20101111
  Transmission Date: 20110411
  Serious: Yes (Hospitalization)
  Sender: FDA-Public Use
  Company Number: A0879901B

PATIENT
  Sex: Female

DRUGS (2)
  1. OFATUMUMAB [Suspect]
     Route: 042
     Dates: start: 20100302
  2. LENALIDOMIDE [Suspect]
     Dosage: 5MG PER DAY
     Route: 048
     Dates: start: 20100310

REACTIONS (1)
  - ATRIAL FIBRILLATION [None]
